APPROVED DRUG PRODUCT: RANITIDINE HYDROCHLORIDE
Active Ingredient: RANITIDINE HYDROCHLORIDE
Strength: EQ 150MG BASE
Dosage Form/Route: TABLET;ORAL
Application: A074662 | Product #001
Applicant: BOEHRINGER INGELHEIM CORP
Approved: Aug 29, 1997 | RLD: No | RS: No | Type: DISCN